FAERS Safety Report 5216650-9 (Version None)
Quarter: 2007Q1

REPORT INFORMATION
  Report Type: 
  Country: None (occurrence: None)
  Receive Date: 20061130
  Receipt Date: 20060414
  Transmission Date: 20070707
  Serious: Yes (Other)
  Sender: FDA-Public Use
  Company Number: US200604002577

PATIENT
  Age: 65 Year
  Sex: Female

DRUGS (2)
  1. ZYPREXA [Suspect]
     Dosage: 15 MG
  2. SEROQUEL [Concomitant]

REACTIONS (2)
  - PARKINSON'S DISEASE [None]
  - TARDIVE DYSKINESIA [None]
